FAERS Safety Report 8535399-8 (Version None)
Quarter: 2012Q3

REPORT INFORMATION
  Report Type: 
  Country: None (occurrence: None)
  Receive Date: 20120725
  Receipt Date: 20120716
  Transmission Date: 20120928
  Serious: No
  Sender: FDA-Public Use
  Company Number: US-BIOGENIDEC-2012BI025769

PATIENT
  Sex: Female

DRUGS (5)
  1. CELEBREX [Concomitant]
     Indication: RHEUMATOID ARTHRITIS
  2. AVONEX [Suspect]
     Indication: MULTIPLE SCLEROSIS
     Route: 030
     Dates: start: 20020401
  3. AVONEX [Suspect]
     Route: 030
  4. TRILEPTAL [Concomitant]
     Indication: CONVULSION
  5. METHOTREXATE [Concomitant]
     Indication: RHEUMATOID ARTHRITIS

REACTIONS (2)
  - OSTEOPOROSIS [None]
  - ARTHRALGIA [None]
